FAERS Safety Report 6461736-4 (Version None)
Quarter: 2009Q4

REPORT INFORMATION
  Report Type: 
  Country: None (occurrence: None)
  Receive Date: 20091130
  Receipt Date: 20091116
  Transmission Date: 20100525
  Serious: Yes (Hospitalization, Other)
  Sender: FDA-Public Use
  Company Number: PHHY2009US51964

PATIENT
  Age: 42 Year
  Sex: Male

DRUGS (4)
  1. CARBAMAZEPINE [Suspect]
     Indication: DISINHIBITION
     Dosage: 200 MG, BID
     Route: 048
  2. CARBAMAZEPINE [Suspect]
     Dosage: 400 MG, BID
     Route: 048
  3. CARBAMAZEPINE [Suspect]
     Dosage: 400 MG, BID
     Route: 048
  4. CARBAMAZEPINE [Suspect]
     Dosage: 300 MG, TID
     Route: 048

REACTIONS (4)
  - AGGRESSION [None]
  - DISINHIBITION [None]
  - HYPONATRAEMIA [None]
  - INAPPROPRIATE ANTIDIURETIC HORMONE SECRETION [None]
